FAERS Safety Report 25093950 (Version 1)
Quarter: 2025Q1

REPORT INFORMATION
  Report Type: Spontaneous
  Country: FI (occurrence: FI)
  Receive Date: 20250319
  Receipt Date: 20250319
  Transmission Date: 20250408
  Serious: Yes (Other)
  Sender: TEVA
  Company Number: FI-TEVA-VS-3291951

PATIENT
  Age: 74 Year
  Sex: Male

DRUGS (6)
  1. NEOTIGASON [Suspect]
     Active Substance: ACITRETIN
     Indication: Eczema
     Route: 065
     Dates: start: 202409, end: 2024
  2. NEOTIGASON [Suspect]
     Active Substance: ACITRETIN
     Indication: Eczema
     Route: 065
     Dates: start: 2024
  3. NEOTIGASON [Suspect]
     Active Substance: ACITRETIN
     Indication: Eczema
     Route: 065
  4. CORTISONE [Concomitant]
     Active Substance: CORTISONE
     Indication: Pruritus
  5. BETAMETHASONE VALERATE [Concomitant]
     Active Substance: BETAMETHASONE VALERATE
     Indication: Product used for unknown indication
  6. CLOBETASOL [Concomitant]
     Active Substance: CLOBETASOL
     Indication: Product used for unknown indication

REACTIONS (9)
  - Night blindness [Unknown]
  - Dry eye [Unknown]
  - Nasal dryness [Unknown]
  - Dry mouth [Unknown]
  - Thirst [Unknown]
  - Chapped lips [Unknown]
  - Blood cholesterol increased [Unknown]
  - Pruritus [Not Recovered/Not Resolved]
  - Cataract [Unknown]

NARRATIVE: CASE EVENT DATE: 20240101
